FAERS Safety Report 20755697 (Version 1)
Quarter: 2022Q2

REPORT INFORMATION
  Report Type: Report from Study
  Country: IT (occurrence: IT)
  Receive Date: 20220427
  Receipt Date: 20220427
  Transmission Date: 20220720
  Serious: Yes (Hospitalization, Other)
  Sender: FDA-Public Use
  Company Number: IT-DSJP-DSE-2021-142426

PATIENT
  Age: 66 Year
  Sex: Male

DRUGS (1)
  1. OLMESARTAN [Suspect]
     Active Substance: OLMESARTAN
     Indication: Hypertension
     Dosage: UNK
     Route: 065

REACTIONS (6)
  - Sprue-like enteropathy [Recovering/Resolving]
  - Gastric polyps [Recovering/Resolving]
  - Intestinal villi atrophy [Recovering/Resolving]
  - Malabsorption [Recovering/Resolving]
  - Gastrointestinal disorder [Recovering/Resolving]
  - Intestinal metaplasia [Recovering/Resolving]
